FAERS Safety Report 18619579 (Version 1)
Quarter: 2020Q4

REPORT INFORMATION
  Report Type: Spontaneous
  Country: TZ (occurrence: TZ)
  Receive Date: 20201215
  Receipt Date: 20201215
  Transmission Date: 20210114
  Serious: No
  Sender: FDA-Public Use
  Company Number: TZ-LUPIN PHARMACEUTICALS INC.-2020-04165

PATIENT
  Age: 31 Year
  Sex: Female

DRUGS (11)
  1. SULFAMETHOXAZOLE AND TRIMETHOPRIM [Suspect]
     Active Substance: SULFAMETHOXAZOLE\TRIMETHOPRIM
     Indication: PROPHYLAXIS
     Dosage: UNK, (GIVEN ON WEEKENDS ONLY)
     Route: 065
  2. BLEOMYCIN [Suspect]
     Active Substance: BLEOMYCIN SULFATE
     Dosage: UNK, (INTENSIFIED CYCLES OF BLEOMYCIN 15 UNITS/ME2; CYCLES OF ABV REGIMEN EVERY THREE WEEKS FOR A TO
     Route: 065
     Dates: start: 2016
  3. DEXAMETHASONE. [Suspect]
     Active Substance: DEXAMETHASONE
     Indication: ANAPHYLAXIS PROPHYLAXIS
     Dosage: UNK (GIVEN PRIOR TO EACH PACLITAXEL CYCLE)
     Route: 065
     Dates: start: 2016
  4. BLEOMYCIN [Suspect]
     Active Substance: BLEOMYCIN SULFATE
     Indication: KAPOSI^S SARCOMA
     Dosage: UNK (SINGLE CYCLE OF BLEOMYCIN 15 UNITS/ME2)
     Route: 065
     Dates: start: 2016, end: 2016
  5. CHLORPHENIRAMINE [CHLORPHENAMINE] [Suspect]
     Active Substance: CHLORPHENIRAMINE
     Indication: ANAPHYLAXIS PROPHYLAXIS
     Dosage: UNK (GIVEN PRIOR TO EACH PACLITAXEL CYCLE)
     Route: 065
     Dates: start: 2016
  6. VINCRISTINE [Suspect]
     Active Substance: VINCRISTINE
     Indication: KAPOSI^S SARCOMA
     Dosage: SINGLE CYCLE OF VINCRISTINE 1.4 MG/M 2 , MAX 2 MG
     Route: 065
     Dates: start: 2016, end: 2016
  7. DOXORUBICIN [Suspect]
     Active Substance: DOXORUBICIN
     Indication: KAPOSI^S SARCOMA
     Dosage: INTENSIFIED CYCLES OF DOXORUBICIN (25-30 MG/M 2 ); ABV REGIMEN EVERY THREE WEEKS FOR A TOTAL OF TEN
     Route: 065
     Dates: start: 2016
  8. PACLITAXEL. [Suspect]
     Active Substance: PACLITAXEL
     Indication: KAPOSI^S SARCOMA
     Dosage: 135 MG/M 2 EVERY THREE WEEKS FOR A TOTAL OF SIX CYCLES
     Route: 065
     Dates: start: 2016
  9. RANITIDINE. [Suspect]
     Active Substance: RANITIDINE
     Indication: ANAPHYLAXIS PROPHYLAXIS
     Dosage: GIVEN PRIOR TO EACH PACLITAXEL CYCLE
     Route: 065
     Dates: start: 2016
  10. TENOFOVIR + LAMIVUDINE + EFAVIRENZ [Suspect]
     Active Substance: EFAVIRENZ\LAMIVUDINE\TENOFOVIR DISOPROXIL FUMARATE
     Indication: HIV INFECTION
     Dosage: UNK
     Route: 065
     Dates: start: 2016
  11. FLUCONAZOLE. [Suspect]
     Active Substance: FLUCONAZOLE
     Indication: ORAL CANDIDIASIS
     Dosage: UNK
     Route: 048

REACTIONS (3)
  - Exposure during pregnancy [Unknown]
  - Delivery [Unknown]
  - Maternal exposure during breast feeding [Unknown]

NARRATIVE: CASE EVENT DATE: 2016
